FAERS Safety Report 15318905 (Version 1)
Quarter: 2018Q3

REPORT INFORMATION
  Report Type: Spontaneous
  Country: US (occurrence: US)
  Receive Date: 20180820
  Receipt Date: 20180820
  Transmission Date: 20181010
  Serious: Yes (Other)
  Sender: FDA-Public Use
  Company Number: None

PATIENT
  Age: 29 Year
  Sex: Male
  Weight: 74.25 kg

DRUGS (5)
  1. ZANTAC [Concomitant]
     Active Substance: RANITIDINE HYDROCHLORIDE
  2. CLONAZEPAM. [Suspect]
     Active Substance: CLONAZEPAM
     Indication: ANXIETY
     Route: 048
     Dates: start: 20170601
  3. BENZOTROPINE [Concomitant]
     Active Substance: BENZTROPINE
  4. HALOPERIDOL. [Concomitant]
     Active Substance: HALOPERIDOL
  5. VALPROIC ACID. [Concomitant]
     Active Substance: VALPROIC ACID

REACTIONS (9)
  - Vomiting [None]
  - Oropharyngeal pain [None]
  - Aphonia [None]
  - Insomnia [None]
  - Headache [None]
  - Alopecia [None]
  - Rash [None]
  - Back pain [None]
  - Arthritis [None]

NARRATIVE: CASE EVENT DATE: 20170601
